FAERS Safety Report 5787048-X (Version None)
Quarter: 2008Q2

REPORT INFORMATION
  Report Type: 
  Country: None (occurrence: None)
  Receive Date: 20080625
  Receipt Date: 20080611
  Transmission Date: 20081010
  Serious: Yes (Hospitalization, Other)
  Sender: FDA-Public Use
  Company Number: PHEH2008US04765

PATIENT
  Sex: Male

DRUGS (1)
  1. STARLIX [Suspect]

REACTIONS (7)
  - ARTHRITIS [None]
  - BLOOD GLUCOSE FLUCTUATION [None]
  - BLOOD GLUCOSE INCREASED [None]
  - CHOLELITHIASIS [None]
  - HYPERTENSION [None]
  - NEPHROLITHIASIS [None]
  - NERVOUS SYSTEM DISORDER [None]
